FAERS Safety Report 8085367-8 (Version None)
Quarter: 2012Q1

REPORT INFORMATION
  Report Type: 
  Country: None (occurrence: None)
  Receive Date: 20120128
  Receipt Date: 20110406
  Transmission Date: 20120608
  Serious: Yes (Other)
  Sender: FDA-Public Use
  Company Number: US-ABBOTT-10P-163-0690671-00

PATIENT
  Sex: Female
  Weight: 68.1 kg

DRUGS (1)
  1. HUMIRA [Suspect]
     Indication: PSORIASIS
     Route: 058
     Dates: start: 20100310, end: 20101210

REACTIONS (2)
  - PERICARDITIS [None]
  - CARDIAC FAILURE [None]
